FAERS Safety Report 9358943 (Version 2)
Quarter: 2013Q3

REPORT INFORMATION
  Report Type: Spontaneous
  Country: US (occurrence: US)
  Receive Date: 20130620
  Receipt Date: 20130709
  Transmission Date: 20140515
  Serious: Yes (Other)
  Sender: FDA-Public Use
  Company Number: US-PFIZER INC-2013180910

PATIENT
  Age: 7 Day
  Sex: Male

DRUGS (1)
  1. VIAGRA [Suspect]
     Dosage: UNK, 4X/DAY

REACTIONS (2)
  - Cardiac disorder [Unknown]
  - Off label use [Unknown]
